FAERS Safety Report 23153752 (Version 2)
Quarter: 2023Q4

REPORT INFORMATION
  Report Type: Spontaneous
  Country: FR (occurrence: FR)
  Receive Date: 20231107
  Receipt Date: 20231120
  Transmission Date: 20240110
  Serious: No
  Sender: FDA-Public Use
  Company Number: FR-SANOFI-01817097

PATIENT
  Age: 72 Year
  Weight: 109.5 kg

DRUGS (28)
  1. RIFAMPIN [Suspect]
     Active Substance: RIFAMPIN
     Indication: Respiratory tract infection
     Dosage: 600 MG, BID
     Dates: start: 20231023
  2. RIFAMPIN [Suspect]
     Active Substance: RIFAMPIN
     Indication: Tuberculosis
  3. RIFAMPIN [Suspect]
     Active Substance: RIFAMPIN
     Indication: Septic shock
  4. PRAMIPEXOLE [Concomitant]
     Active Substance: PRAMIPEXOLE
     Dosage: 1 MG, QD
  5. PRAMIPEXOLE [Concomitant]
     Active Substance: PRAMIPEXOLE
     Dosage: 250 UG
     Dates: start: 20231023
  6. PRAMIPEXOLE [Concomitant]
     Active Substance: PRAMIPEXOLE
     Dosage: 0.7 MG
     Dates: start: 20231022
  7. PRAMIPEXOLE EG [Concomitant]
     Dosage: 40 MG, BID
  8. ALDACTONE [Concomitant]
     Active Substance: SPIRONOLACTONE
     Dosage: 25 MG, QD
  9. SERTRALINE HYDROCHLORIDE [Concomitant]
     Active Substance: SERTRALINE HYDROCHLORIDE
     Dosage: UNK
  10. ZOPICLONE [Concomitant]
     Active Substance: ZOPICLONE
     Dosage: 3.75 MG, QD
  11. GABAPENTINE TEVA [Concomitant]
     Dosage: UNK
  12. GLUCOSE [ASCORBIC ACID;GLUCOSE] [Concomitant]
     Dosage: 2000 ML, 1X
  13. GLUCOSE MONOHYDRATE;POTASSIUM CHLORIDE [Concomitant]
     Dosage: 500 ML, 1X
     Dates: start: 202310, end: 202310
  14. SONDALIS ENERGY [Concomitant]
     Dosage: 500 ML, 1X
     Dates: start: 20231023, end: 20231023
  15. SONDALIS ENERGY [Concomitant]
     Dosage: 1000 ML, 1X
     Dates: start: 20231024, end: 20231024
  16. MIDAZOLAM [Concomitant]
     Active Substance: MIDAZOLAM
     Dosage: 50 MG, 1X
     Dates: start: 20231023, end: 20231023
  17. SUFENTA [Concomitant]
     Active Substance: SUFENTANIL CITRATE
     Dosage: 250 UG
     Dates: start: 20231023
  18. NOREPINEPHRINE [Concomitant]
     Active Substance: NOREPINEPHRINE
     Dosage: 24 MG
     Dates: start: 20231023
  19. HEPARIN SODIUM [Concomitant]
     Active Substance: HEPARIN SODIUM
     Dosage: 20000 IU
     Dates: start: 20231024
  20. CILASTATIN SODIUM\IMIPENEM [Concomitant]
     Active Substance: CILASTATIN SODIUM\IMIPENEM
     Dosage: 1000 MG, QD
     Dates: start: 20231023
  21. CORDARONE [Concomitant]
     Active Substance: AMIODARONE HYDROCHLORIDE
     Dosage: 600 MG
     Dates: start: 20231022
  22. ESOMEPRAZOLE SODIUM [Concomitant]
     Active Substance: ESOMEPRAZOLE SODIUM
     Dosage: 40 MG, QD
     Route: 041
     Dates: start: 20231019
  23. HUMALOG [Concomitant]
     Active Substance: INSULIN LISPRO
     Dosage: 50 IU
     Dates: start: 20231019
  24. POLYETHYLENE GLYCOL 4000 [Concomitant]
     Active Substance: POLYETHYLENE GLYCOL 4000
     Dosage: 1 DF, PRN
     Dates: start: 20231021
  25. ATROVENT [Concomitant]
     Active Substance: IPRATROPIUM BROMIDE
     Dosage: 0.5 UNK, QD
     Dates: start: 20231019
  26. ALBUTEROL SULFATE [Concomitant]
     Active Substance: ALBUTEROL SULFATE
     Dosage: 5 MG, QD
     Dates: start: 20231019
  27. DAPTOMYCIN [Concomitant]
     Active Substance: DAPTOMYCIN
     Indication: Septic shock
     Dosage: UNK
  28. GENTAMICIN [Concomitant]
     Active Substance: GENTAMICIN
     Indication: Septic shock
     Dosage: UNK

REACTIONS (1)
  - Off label use [Unknown]

NARRATIVE: CASE EVENT DATE: 20231023
